FAERS Safety Report 5333149-X (Version None)
Quarter: 2007Q2

REPORT INFORMATION
  Report Type: 
  Country: None (occurrence: None)
  Receive Date: 20070521
  Receipt Date: 20070521
  Transmission Date: 20071010
  Serious: Yes (Life-Threatening, Hospitalization)
  Sender: FDA-Public Use
  Company Number: None

PATIENT
  Sex: Female
  Weight: 122.4712 kg

DRUGS (12)
  1. ACTIVASE [Suspect]
     Indication: CEREBROVASCULAR ACCIDENT
     Dosage: 90 MG ONCE IV DRIP
     Route: 041
     Dates: start: 20070505, end: 20070505
  2. ISOSORBIDE [Concomitant]
  3. TOPROL-XL [Concomitant]
  4. ZOCOR [Concomitant]
  5. LASIX [Concomitant]
  6. ASPIRIN [Concomitant]
  7. BACTROBAN [Concomitant]
  8. MULTI-VITAMIN [Concomitant]
  9. DARVOCET [Concomitant]
  10. AVELOX [Concomitant]
  11. MINOCYCLINE HCL [Concomitant]
  12. TYLENOL [Concomitant]

REACTIONS (2)
  - APALLIC SYNDROME [None]
  - CEREBRAL HAEMORRHAGE [None]
